FAERS Safety Report 23650454 (Version 2)
Quarter: 2024Q3

REPORT INFORMATION
  Report Type: Report from Study
  Country: US (occurrence: US)
  Receive Date: 20240320
  Receipt Date: 20240703
  Transmission Date: 20241016
  Serious: Yes (Other)
  Sender: ABBVIE
  Company Number: US-ABBVIE-5613087

PATIENT
  Age: 57 Year
  Sex: Male

DRUGS (3)
  1. RINVOQ [Suspect]
     Active Substance: UPADACITINIB
     Indication: Crohn^s disease
     Dosage: FORM STRENGTH: 30 MILLIGRAM, LAST ADMIN DATE 2023
     Route: 048
     Dates: start: 20230822
  2. RINVOQ [Suspect]
     Active Substance: UPADACITINIB
     Indication: Crohn^s disease
     Route: 048
     Dates: start: 20230906, end: 202403
  3. RINVOQ [Suspect]
     Active Substance: UPADACITINIB
     Indication: Crohn^s disease
     Route: 048
     Dates: start: 20240401

REACTIONS (5)
  - Intestinal obstruction [Unknown]
  - Gastrointestinal scarring [Unknown]
  - Crohn^s disease [Unknown]
  - Enteritis [Recovering/Resolving]
  - Gastrointestinal inflammation [Unknown]

NARRATIVE: CASE EVENT DATE: 20230901
